FAERS Safety Report 7532085-8 (Version None)
Quarter: 2011Q2

REPORT INFORMATION
  Report Type: 
  Country: None (occurrence: None)
  Receive Date: 20110608
  Receipt Date: 20110602
  Transmission Date: 20111010
  Serious: No
  Sender: FDA-Public Use
  Company Number: US-PFIZER INC-2011120517

PATIENT
  Sex: Male
  Weight: 97.506 kg

DRUGS (2)
  1. ADVIL COLD AND SINUS [Suspect]
     Indication: SINUS DISORDER
     Dosage: 200 MG, 2X/DAY
     Route: 048
     Dates: start: 20110501, end: 20110531
  2. LISINOPRIL [Suspect]
     Indication: HYPERTENSION
     Dosage: UNK

REACTIONS (2)
  - DRUG INTERACTION [None]
  - HEADACHE [None]
